FAERS Safety Report 12715928 (Version 2)
Quarter: 2016Q3

REPORT INFORMATION
  Report Type: Spontaneous
  Country: JP (occurrence: JP)
  Receive Date: 20160906
  Receipt Date: 20160919
  Transmission Date: 20161109
  Serious: Yes (Other)
  Sender: FDA-Public Use
  Company Number: JP-ACCORD-043801

PATIENT
  Age: 62 Year
  Sex: Female

DRUGS (7)
  1. FLUOROURACIL. [Suspect]
     Active Substance: FLUOROURACIL
     Indication: RECTAL CANCER
     Dosage: FOLFOX4, BOLUS 400 MG/M2 DAY 1 OR 2, CHANGED TO CONTINUOUS INFUSION 600 MG/M2 22 HR DAY 1 OR 2
     Route: 040
     Dates: start: 201201
  2. BEVACIZUMAB [Suspect]
     Active Substance: BEVACIZUMAB
     Indication: RECTAL CANCER
     Dosage: 1 COURSE OF 14 DAYS, 5 MG/KG (2 COURSE DAY FROM 10 MG/KG) DAY 1
     Dates: start: 201206
  3. OXALIPLATIN. [Suspect]
     Active Substance: OXALIPLATIN
     Indication: RECTAL CANCER
     Dosage: FOLFOX4, 1 COURSE OF 14 DAYS, 85 MG/M2 DAY 1 OR 2
     Dates: start: 201201
  4. CARBOPLATIN. [Suspect]
     Active Substance: CARBOPLATIN
     Indication: RECTAL CANCER
     Dosage: 1 COURSE OF 28 DAYS, AUC5 DAY 1
     Dates: start: 201109
  5. IRINOTECAN [Suspect]
     Active Substance: IRINOTECAN
     Indication: RECTAL CANCER
     Dosage: 1 COURSE OF 28 DAYS, DAY 1, 8, 15
     Dates: start: 201109
  6. PANITUMUMAB [Suspect]
     Active Substance: PANITUMUMAB
     Indication: RECTAL CANCER
     Dosage: 1 COURSE OF 14 DAYS, 6 MG/KG DAY 1
     Dates: start: 201201
  7. FOLINIC ACID [Concomitant]
     Active Substance: LEUCOVORIN
     Indication: RECTAL CANCER
     Dosage: FOLFOX4

REACTIONS (5)
  - Neuropathy peripheral [Unknown]
  - Dermatitis acneiform [Unknown]
  - Bone marrow failure [Unknown]
  - Neutropenia [Unknown]
  - Paronychia [Unknown]
